FAERS Safety Report 16993834 (Version 2)
Quarter: 2019Q4

REPORT INFORMATION
  Report Type: Spontaneous
  Country: IT (occurrence: IT)
  Receive Date: 20191105
  Receipt Date: 20191106
  Transmission Date: 20200122
  Serious: Yes (Other)
  Sender: FDA-Public Use
  Company Number: IT-BAXTER-2019BAX022341

PATIENT
  Age: 13 Year
  Sex: Male

DRUGS (4)
  1. METHOTREXATE. [Suspect]
     Active Substance: METHOTREXATE
     Indication: OSTEOSARCOMA
     Route: 065
  2. LEUCOVORIN. [Suspect]
     Active Substance: LEUCOVORIN
     Indication: OSTEOSARCOMA
     Dosage: 10 MG/M2 EVERY 6 H FOR 12 DOSES I.V. UNTIL MTX LEVEL LESS THAN 0.05 UMOL
     Route: 065
  3. CISPLATIN. [Suspect]
     Active Substance: CISPLATIN
     Indication: OSTEOSARCOMA
     Route: 065
  4. DOXIL [Suspect]
     Active Substance: DOXORUBICIN HYDROCHLORIDE
     Indication: OSTEOSARCOMA
     Route: 065

REACTIONS (7)
  - Encephalopathy [Unknown]
  - Confusional state [Unknown]
  - Neutropenia [Unknown]
  - Psychomotor hyperactivity [Unknown]
  - C-reactive protein increased [Unknown]
  - Pyrexia [Unknown]
  - Status epilepticus [Unknown]
